FAERS Safety Report 20644878 (Version 2)
Quarter: 2022Q2

REPORT INFORMATION
  Report Type: Spontaneous
  Country: CN (occurrence: None)
  Receive Date: 20220328
  Receipt Date: 20220401
  Transmission Date: 20220721
  Serious: Yes (Hospitalization, Other)
  Sender: FDA-Public Use
  Company Number: 2022A127152

PATIENT
  Age: 57 Year
  Sex: Female

DRUGS (4)
  1. QUETIAPINE [Suspect]
     Active Substance: QUETIAPINE
     Route: 048
  2. MEROPENEM [Concomitant]
     Active Substance: MEROPENEM
     Indication: Antiinflammatory therapy
     Route: 065
  3. PERAMIVIR [Concomitant]
     Active Substance: PERAMIVIR
     Indication: Antiinflammatory therapy
     Route: 065
  4. GAVE METHYLPREDNISOLONE [Concomitant]
     Indication: Antiinflammatory therapy
     Dosage: 80 MG, TWICE A DAY, INTRAVENOUS DRIP
     Route: 065

REACTIONS (4)
  - Overdose [Recovering/Resolving]
  - Acute respiratory distress syndrome [Recovering/Resolving]
  - Coma [Recovering/Resolving]
  - Hypotension [Recovering/Resolving]
